FAERS Safety Report 4486382-3 (Version None)
Quarter: 2004Q4

REPORT INFORMATION
  Report Type: 
  Country: None (occurrence: None)
  Receive Date: 20041026
  Receipt Date: 20041026
  Transmission Date: 20050328
  Serious: Yes (Hospitalization)
  Sender: FDA-Public Use
  Company Number: None

PATIENT
  Age: 46 Year
  Sex: Male

DRUGS (1)
  1. COMBIVIR [Suspect]
     Indication: HIV INFECTION
     Dosage: TWO TABLETS   BID   ORAL
     Route: 048

REACTIONS (4)
  - ANAEMIA [None]
  - DYSPNOEA [None]
  - HAEMATOCHEZIA [None]
  - HYPONATRAEMIA [None]
